FAERS Safety Report 9657970 (Version 3)
Quarter: 2013Q4

REPORT INFORMATION
  Report Type: Spontaneous
  Country: GB (occurrence: GB)
  Receive Date: 20131030
  Receipt Date: 20131115
  Transmission Date: 20140711
  Serious: Yes (Hospitalization)
  Sender: FDA-Public Use
  Company Number: GB-BAXTER-2013BAX040680

PATIENT
  Sex: Female

DRUGS (3)
  1. DIANEAL PD4 GLUCOSE 1.36% W/V / 13.6 MG/ML [Suspect]
     Indication: PERITONEAL DIALYSIS
     Route: 033
  2. EXTRANEAL (ICODEXTRIN 7.5%) SOLUTION FOR PERITONEAL DIALYSIS [Suspect]
     Indication: PERITONEAL DIALYSIS
     Route: 033
  3. NUTRINEAL PD4 WITH 1.1% AMINO ACIDS [Suspect]
     Indication: PERITONEAL DIALYSIS
     Route: 033

REACTIONS (3)
  - Peritonitis bacterial [Unknown]
  - Catheter site extravasation [Unknown]
  - Cellulitis [Unknown]
